FAERS Safety Report 15777139 (Version 1)
Quarter: 2018Q4

REPORT INFORMATION
  Report Type: Spontaneous
  Country: BR (occurrence: BR)
  Receive Date: 20181231
  Receipt Date: 20181231
  Transmission Date: 20190205
  Serious: Yes (Life-Threatening, Other)
  Sender: FDA-Public Use
  Company Number: BR-PFIZER INC-2018533498

PATIENT
  Age: 80 Year
  Sex: Female

DRUGS (1)
  1. FRONTAL XR [Suspect]
     Active Substance: ALPRAZOLAM
     Dosage: 2 MG, DAILY

REACTIONS (3)
  - Feeling abnormal [Unknown]
  - Drug dependence [Unknown]
  - Blood pressure abnormal [Unknown]
